FAERS Safety Report 16897781 (Version 1)
Quarter: 2019Q4

REPORT INFORMATION
  Report Type: Spontaneous
  Country: FR (occurrence: FR)
  Receive Date: 20191009
  Receipt Date: 20191009
  Transmission Date: 20200122
  Serious: Yes (Other)
  Sender: FDA-Public Use
  Company Number: FR-SA-2019SA276484

PATIENT
  Age: 68 Year
  Sex: Female
  Weight: 52 kg

DRUGS (5)
  1. COLCHIMAX (COLCHICINE\OPIUM\TIEMONIUM METHYLSULFATE) [Suspect]
     Active Substance: COLCHICINE\OPIUM\TIEMONIUM METHYLSULFATE
     Indication: PERICARDITIS
     Dosage: 1 MG, QD
     Route: 048
     Dates: start: 20190710
  2. CLOPIDOGREL BISULFATE. [Suspect]
     Active Substance: CLOPIDOGREL BISULFATE
     Indication: ACUTE CORONARY SYNDROME
     Dosage: UNKNOWN
     Route: 048
     Dates: start: 201907
  3. CARVEDILOL. [Suspect]
     Active Substance: CARVEDILOL
     Dosage: UNKNOWN
     Route: 048
     Dates: start: 201907
  4. RAMIPRIL. [Suspect]
     Active Substance: RAMIPRIL
     Dosage: UNKNOWN
     Route: 048
     Dates: start: 201907
  5. KARDEGIC [Suspect]
     Active Substance: ASPIRIN DL-LYSINE
     Indication: ACUTE CORONARY SYNDROME
     Dosage: UNKNOWN
     Route: 048
     Dates: start: 201907

REACTIONS (1)
  - Intracardiac thrombus [Not Recovered/Not Resolved]

NARRATIVE: CASE EVENT DATE: 20190712
